FAERS Safety Report 7685764-6 (Version None)
Quarter: 2011Q3

REPORT INFORMATION
  Report Type: 
  Country: None (occurrence: None)
  Receive Date: 20110815
  Receipt Date: 20110815
  Transmission Date: 20111222
  Serious: Yes (Hospitalization)
  Sender: FDA-Public Use
  Company Number: None

PATIENT
  Age: 69 Year
  Sex: Male
  Weight: 109.4 kg

DRUGS (12)
  1. PRADAXA [Suspect]
     Indication: ATRIAL FIBRILLATION
     Dosage: 75 MG
     Route: 048
  2. NIACIN [Concomitant]
     Route: 048
  3. COLACE [Concomitant]
     Route: 048
  4. LIPITOR [Concomitant]
     Route: 048
  5. PRADAXA [Concomitant]
     Route: 048
  6. TYLENOL-500 [Concomitant]
     Route: 048
  7. NITROGLYCERIN P.R.N [Concomitant]
     Route: 048
  8. ASPIRIN [Concomitant]
     Route: 048
  9. CARBAMAZEPINE [Concomitant]
     Route: 048
  10. REGLAN [Concomitant]
     Route: 048
  11. LEVOTHYROXINE SODIUM [Concomitant]
     Route: 048
  12. TRAZODONE HCL [Concomitant]
     Route: 048

REACTIONS (7)
  - IMPAIRED GASTRIC EMPTYING [None]
  - CONDITION AGGRAVATED [None]
  - FATIGUE [None]
  - DYSPNOEA EXERTIONAL [None]
  - RENAL FAILURE CHRONIC [None]
  - BALANCE DISORDER [None]
  - DYSPNOEA AT REST [None]
